FAERS Safety Report 14593421 (Version 1)
Quarter: 2018Q1

REPORT INFORMATION
  Report Type: Spontaneous
  Country: FR (occurrence: FR)
  Receive Date: 20180302
  Receipt Date: 20180302
  Transmission Date: 20180509
  Serious: Yes (Hospitalization)
  Sender: FDA-Public Use
  Company Number: FR-BAUSCH-BL-2018-005737

PATIENT
  Age: 45 Year
  Sex: Female
  Weight: 60 kg

DRUGS (7)
  1. TIMOLOL MALEATE. [Suspect]
     Active Substance: TIMOLOL MALEATE
     Indication: TOXICITY TO VARIOUS AGENTS
     Route: 047
  2. ALPRAZOLAM. [Suspect]
     Active Substance: ALPRAZOLAM
     Indication: TOXICITY TO VARIOUS AGENTS
     Route: 048
  3. TRAMADOL HYDROCHLORIDE. [Suspect]
     Active Substance: TRAMADOL HYDROCHLORIDE
     Indication: TOXICITY TO VARIOUS AGENTS
     Route: 048
  4. ATROPINE. [Suspect]
     Active Substance: ATROPINE
     Indication: TOXICITY TO VARIOUS AGENTS
     Route: 047
  5. ACETAMINOPHEN. [Suspect]
     Active Substance: ACETAMINOPHEN
     Indication: TOXICITY TO VARIOUS AGENTS
     Route: 048
  6. QUETIAPINE FUMARATE. [Suspect]
     Active Substance: QUETIAPINE FUMARATE
     Indication: TOXICITY TO VARIOUS AGENTS
     Route: 048
  7. ACYCLOVIR. [Suspect]
     Active Substance: ACYCLOVIR
     Indication: TOXICITY TO VARIOUS AGENTS
     Route: 048

REACTIONS (2)
  - Off label use [Unknown]
  - Coma [Recovered/Resolved]

NARRATIVE: CASE EVENT DATE: 20180207
